FAERS Safety Report 17442785 (Version 2)
Quarter: 2020Q1

REPORT INFORMATION
  Report Type: Spontaneous
  Country: US (occurrence: US)
  Receive Date: 20200220
  Receipt Date: 20200328
  Transmission Date: 20200409
  Serious: Yes (Other)
  Sender: FDA-Public Use
  Company Number: US-SHIRE-US202006293

PATIENT
  Age: 61 Year
  Sex: Female

DRUGS (1)
  1. DEXTROAMPHET SACCHARAT, AMPHET ASPARTATE, DEXTROAMPHET SULFATE AND AMPHET SULFAT [Suspect]
     Active Substance: AMPHETAMINE ASPARTATE\AMPHETAMINE SULFATE\DEXTROAMPHETAMINE SACCHARATE\DEXTROAMPHETAMINE SULFATE
     Indication: PRODUCT USED FOR UNKNOWN INDICATION
     Dosage: 20 MILLIGRAM
     Route: 065

REACTIONS (16)
  - Feeding disorder [Not Recovered/Not Resolved]
  - Hallucination [Recovered/Resolved]
  - Muscle disorder [Unknown]
  - Musculoskeletal stiffness [Unknown]
  - Laryngitis [Not Recovered/Not Resolved]
  - Ear pain [Unknown]
  - Nausea [Unknown]
  - Product physical issue [Unknown]
  - Neck pain [Unknown]
  - Pain [Recovered/Resolved]
  - Tension [Unknown]
  - Muscle tightness [Not Recovered/Not Resolved]
  - Sleep disorder [Not Recovered/Not Resolved]
  - Back pain [Unknown]
  - Blood pressure increased [Recovered/Resolved]
  - Malaise [Not Recovered/Not Resolved]

NARRATIVE: CASE EVENT DATE: 20200207
